FAERS Safety Report 12342570 (Version 1)
Quarter: 2016Q2

REPORT INFORMATION
  Report Type: Spontaneous
  Country: DE (occurrence: DE)
  Receive Date: 20160506
  Receipt Date: 20160506
  Transmission Date: 20160815
  Serious: Yes (Other)
  Sender: FDA-Public Use
  Company Number: DE-EXELIXIS-CABO-16006370

PATIENT
  Age: 30 Year
  Sex: Female
  Weight: 66 kg

DRUGS (1)
  1. COMETRIQ [Suspect]
     Active Substance: CABOZANTINIB S-MALATE
     Indication: THYROID CANCER METASTATIC
     Dosage: 140 MG, QD
     Route: 048
     Dates: start: 20151217, end: 20160309

REACTIONS (4)
  - Albinism [Recovering/Resolving]
  - Hepatotoxicity [Recovered/Resolved]
  - Abdominal pain [Recovering/Resolving]
  - Amenorrhoea [Recovering/Resolving]

NARRATIVE: CASE EVENT DATE: 20160203
